FAERS Safety Report 9303039 (Version 3)
Quarter: 2013Q2

REPORT INFORMATION
  Report Type: Report from Study
  Country: US (occurrence: JP)
  Receive Date: 20130522
  Receipt Date: 20130612
  Transmission Date: 20140414
  Serious: Yes (Other)
  Sender: FDA-Public Use
  Company Number: JP-FRI-1000045231

PATIENT
  Age: 42 Year
  Sex: Female
  Weight: 69.3 kg

DRUGS (1)
  1. LINZESS [Suspect]
     Indication: IRRITABLE BOWEL SYNDROME
     Dosage: 0.0625 MG
     Route: 048
     Dates: start: 20130423, end: 20130509

REACTIONS (1)
  - Hepatic function abnormal [Recovered/Resolved]
